FAERS Safety Report 7540092-4 (Version None)
Quarter: 2011Q2

REPORT INFORMATION
  Report Type: 
  Country: None (occurrence: None)
  Receive Date: 20110610
  Receipt Date: 20110606
  Transmission Date: 20111010
  Serious: Yes (Hospitalization)
  Sender: FDA-Public Use
  Company Number: GB-ABBOTT-11P-167-0730653-00

PATIENT
  Age: 3 Year
  Sex: Male

DRUGS (1)
  1. VALPROATE SODIUM [Suspect]
     Indication: ACCIDENTAL OVERDOSE
     Route: 048

REACTIONS (3)
  - SOMNOLENCE [None]
  - ACCIDENTAL OVERDOSE [None]
  - ABASIA [None]
